FAERS Safety Report 5684410-0 (Version None)
Quarter: 2008Q1

REPORT INFORMATION
  Report Type: 
  Country: None (occurrence: None)
  Receive Date: 20080328
  Receipt Date: 20080319
  Transmission Date: 20080703
  Serious: Yes (Hospitalization)
  Sender: FDA-Public Use
  Company Number: BR-JNJFOC-20080306461

PATIENT
  Sex: Male
  Weight: 8 kg

DRUGS (2)
  1. EXTRA STRENGTH TYLENOL [Suspect]
  2. EXTRA STRENGTH TYLENOL [Suspect]
     Indication: DRUG EXPOSURE VIA BREAST MILK

REACTIONS (3)
  - DRUG EXPOSURE VIA BREAST MILK [None]
  - ERYTHEMA [None]
  - SKIN EXFOLIATION [None]
